FAERS Safety Report 6196484-1 (Version None)
Quarter: 2009Q2

REPORT INFORMATION
  Report Type: 
  Country: None (occurrence: None)
  Receive Date: 20090520
  Receipt Date: 20090513
  Transmission Date: 20091009
  Serious: Yes (Hospitalization)
  Sender: FDA-Public Use
  Company Number: JP-TEVA-195059ISR

PATIENT
  Sex: Male
  Weight: 68.6 kg

DRUGS (7)
  1. FLUOROURACIL [Suspect]
     Indication: COLORECTAL CANCER METASTATIC
     Route: 041
     Dates: start: 20090312
  2. FLUOROURACIL [Suspect]
     Route: 040
     Dates: start: 20090312, end: 20090326
  3. FOLINIC ACID [Suspect]
     Indication: COLORECTAL CANCER METASTATIC
     Route: 042
     Dates: start: 20090312
  4. SUNITINIB MALATE [Suspect]
     Indication: COLORECTAL CANCER METASTATIC
     Route: 048
     Dates: start: 20090312
  5. OXALIPLATIN [Suspect]
     Indication: COLORECTAL CANCER METASTATIC
     Route: 042
     Dates: start: 20090312
  6. AMLODIPINE BESYLATE [Concomitant]
  7. BETAMETHASONE VALERATE/GENTAMICIN SULFATE [Concomitant]

REACTIONS (1)
  - HERPES VIRUS INFECTION [None]
